FAERS Safety Report 11535447 (Version 1)
Quarter: 2015Q3

REPORT INFORMATION
  Report Type: Spontaneous
  Country: US (occurrence: US)
  Receive Date: 20150922
  Receipt Date: 20150922
  Transmission Date: 20151125
  Serious: Yes (Other)
  Sender: FDA-Public Use
  Company Number: US-ASTELLAS-2015US033221

PATIENT
  Sex: Female

DRUGS (1)
  1. TARCEVA [Suspect]
     Active Substance: ERLOTINIB HYDROCHLORIDE
     Indication: PRODUCT USED FOR UNKNOWN INDICATION
     Dosage: 100 MG, UNK, 30 CT BOTTLE
     Route: 065

REACTIONS (6)
  - Arterial rupture [Unknown]
  - Vomiting [Unknown]
  - Oesophageal stenosis [Unknown]
  - Haematemesis [Unknown]
  - Dysphagia [Unknown]
  - Transfusion [Unknown]
